FAERS Safety Report 6609153-8 (Version None)
Quarter: 2010Q1

REPORT INFORMATION
  Report Type: 
  Country: None (occurrence: None)
  Receive Date: 20100226
  Receipt Date: 20100226
  Transmission Date: 20100710
  Serious: Yes (Disabling)
  Sender: FDA-Public Use
  Company Number: None

PATIENT
  Age: 72 Year
  Sex: Male
  Weight: 91.6266 kg

DRUGS (1)
  1. AVANDIA [Suspect]
     Indication: TYPE 2 DIABETES MELLITUS
     Dosage: -1- 4MG ONCE A DAY ! A DAY PO
     Route: 048
     Dates: start: 20030116, end: 20030714

REACTIONS (2)
  - CARDIAC FAILURE [None]
  - PRODUCT SUBSTITUTION ISSUE [None]
